FAERS Safety Report 9691420 (Version 2)
Quarter: 2013Q4

REPORT INFORMATION
  Report Type: Spontaneous
  Country: US (occurrence: US)
  Receive Date: 20131115
  Receipt Date: 20131126
  Transmission Date: 20140711
  Serious: Yes (Other)
  Sender: FDA-Public Use
  Company Number: US-MERCK-1311USA005499

PATIENT
  Age: 50 Year
  Sex: Male

DRUGS (2)
  1. SINGULAIR [Suspect]
     Indication: RHINITIS ALLERGIC
     Dosage: UNK
     Route: 048
  2. SINGULAIR [Suspect]
     Indication: ASTHMA
     Dosage: UNK
     Route: 048

REACTIONS (2)
  - Asthma [Unknown]
  - Product substitution issue [Unknown]
